FAERS Safety Report 4518945-0 (Version None)
Quarter: 2004Q4

REPORT INFORMATION
  Report Type: 
  Country: None (occurrence: None)
  Receive Date: 20041203
  Receipt Date: 20041203
  Transmission Date: 20050328
  Serious: No
  Sender: FDA-Public Use
  Company Number: None

PATIENT
  Age: 57 Year
  Sex: Female
  Weight: 59.8748 kg

DRUGS (2)
  1. ZOLOFT [Suspect]
     Indication: MENTAL DISORDER
     Dosage: ONCE IN MORNING SWALLOWED W/ WATER
     Route: 048
     Dates: start: 19920101, end: 20040910
  2. NEXIUM [Concomitant]

REACTIONS (4)
  - ANXIETY [None]
  - FORMICATION [None]
  - GASTROOESOPHAGEAL REFLUX DISEASE [None]
  - VOMITING [None]
